FAERS Safety Report 14791509 (Version 1)
Quarter: 2018Q2

REPORT INFORMATION
  Report Type: Spontaneous
  Country: US (occurrence: US)
  Receive Date: 20180413
  Receipt Date: 20180413
  Transmission Date: 20180711
  Serious: No
  Sender: FDA-Public Use
  Company Number: None

PATIENT
  Age: 35 Year
  Sex: Male
  Weight: 121.5 kg

DRUGS (1)
  1. FLUOXETINE HCL 20MG CAPS [Suspect]
     Active Substance: FLUOXETINE HYDROCHLORIDE
     Indication: MAJOR DEPRESSION
     Dosage: ?          QUANTITY:5 CAPSULE(S);?
     Route: 048
     Dates: start: 20180405, end: 20180411

REACTIONS (12)
  - Product substitution issue [None]
  - Suicidal ideation [None]
  - Condition aggravated [None]
  - Anxiety [None]
  - Myalgia [None]
  - Muscle rigidity [None]
  - Depression [None]
  - Agitation [None]
  - Nausea [None]
  - Pyrexia [None]
  - Restlessness [None]
  - Cold sweat [None]

NARRATIVE: CASE EVENT DATE: 20180405
